FAERS Safety Report 20650979 (Version 1)
Quarter: 2022Q1

REPORT INFORMATION
  Report Type: Report from Study
  Country: US (occurrence: US)
  Receive Date: 20220329
  Receipt Date: 20220329
  Transmission Date: 20220423
  Serious: Yes (Other)
  Sender: FDA-Public Use
  Company Number: US-BIOGEN-2022BI01107905

PATIENT
  Sex: Female

DRUGS (1)
  1. VUMERITY [Suspect]
     Active Substance: DIROXIMEL FUMARATE
     Indication: Multiple sclerosis
     Dosage: TOOK ONE PILL TWICE A DAY FOR A FEW WEEKS
     Route: 065

REACTIONS (3)
  - Blindness unilateral [Unknown]
  - Memory impairment [Unknown]
  - Prescribed underdose [Unknown]
